FAERS Safety Report 7597851-1 (Version None)
Quarter: 2011Q3

REPORT INFORMATION
  Report Type: 
  Country: None (occurrence: None)
  Receive Date: 20110708
  Receipt Date: 20110627
  Transmission Date: 20111222
  Serious: Yes (Death, Disabling, Other)
  Sender: FDA-Public Use
  Company Number: US-MERCK-1102USA02319

PATIENT
  Age: 69 Year
  Sex: Female

DRUGS (2)
  1. PLAVIX [Concomitant]
     Indication: THROMBOSIS PROPHYLAXIS
     Route: 065
     Dates: start: 20011201, end: 20090101
  2. FOSAMAX [Suspect]
     Indication: OSTEOPOROSIS PROPHYLAXIS
     Route: 048
     Dates: start: 20011204, end: 20070419

REACTIONS (24)
  - FATIGUE [None]
  - UPPER RESPIRATORY TRACT INFECTION [None]
  - PALPITATIONS [None]
  - COUGH [None]
  - OSTEONECROSIS OF JAW [None]
  - CERUMEN IMPACTION [None]
  - CAROTID ARTERY OCCLUSION [None]
  - ANAEMIA [None]
  - DEATH [None]
  - SUBCUTANEOUS ABSCESS [None]
  - OSTEOARTHRITIS [None]
  - CHEST PAIN [None]
  - LIMB INJURY [None]
  - WOUND INFECTION [None]
  - DIARRHOEA [None]
  - OSTEOMYELITIS [None]
  - CHRONIC OBSTRUCTIVE PULMONARY DISEASE [None]
  - VERTIGO [None]
  - PERIPHERAL VASCULAR DISORDER [None]
  - FALL [None]
  - DYSPNOEA [None]
  - SQUAMOUS CELL CARCINOMA [None]
  - ABDOMINAL PAIN [None]
  - HAEMATOMA [None]
